FAERS Safety Report 6196520-2 (Version None)
Quarter: 2009Q2

REPORT INFORMATION
  Report Type: 
  Country: None (occurrence: None)
  Receive Date: 20090518
  Receipt Date: 20090504
  Transmission Date: 20091009
  Serious: Yes (Hospitalization)
  Sender: FDA-Public Use
  Company Number: 2009AL002913

PATIENT
  Age: 29 Year
  Sex: Male

DRUGS (2)
  1. SERTRALINE HYDROCHLORIDE        (BASE) (AELLC) [Suspect]
     Indication: DRUG USE FOR UNKNOWN INDICATION
     Dosage: 2.5 DF;QD;PO
     Route: 048
     Dates: start: 20080601
  2. GALENICAL     FORMULATION UNKNOWN [Concomitant]

REACTIONS (4)
  - ANAEMIA [None]
  - GASTROINTESTINAL HAEMORRHAGE [None]
  - GENERAL PHYSICAL HEALTH DETERIORATION [None]
  - HAEMATEMESIS [None]
